FAERS Safety Report 15007815 (Version 3)
Quarter: 2020Q1

REPORT INFORMATION
  Report Type: Spontaneous
  Country: US (occurrence: US)
  Receive Date: 20180613
  Receipt Date: 20200304
  Transmission Date: 20200409
  Serious: No
  Sender: FDA-Public Use
  Company Number: US-VIFOR (INTERNATIONAL) INC.-VIT-2018-05469

PATIENT
  Sex: Male

DRUGS (9)
  1. ELIQUIS [Concomitant]
     Active Substance: APIXABAN
  2. TERAZOSIN HCL [Concomitant]
     Active Substance: TERAZOSIN HYDROCHLORIDE
  3. METOPROLOL TARTRATE. [Concomitant]
     Active Substance: METOPROLOL TARTRATE
  4. ASPIR 81 [Concomitant]
     Active Substance: ASPIRIN
  5. AMLODIPINE BESYLATE. [Concomitant]
     Active Substance: AMLODIPINE BESYLATE
  6. VELTASSA [Suspect]
     Active Substance: PATIROMER
     Indication: HYPERKALAEMIA
     Route: 048
     Dates: start: 20160524
  7. ATORVASTATIN CALCIUM. [Concomitant]
     Active Substance: ATORVASTATIN CALCIUM
  8. VIAGRA [Concomitant]
     Active Substance: SILDENAFIL CITRATE
  9. NITROGLYCERIN. [Concomitant]
     Active Substance: NITROGLYCERIN

REACTIONS (2)
  - Product dose omission [Unknown]
  - Diarrhoea [Unknown]
